FAERS Safety Report 10082284 (Version 1)
Quarter: 2014Q2

REPORT INFORMATION
  Report Type: Spontaneous
  Country: DE (occurrence: DE)
  Receive Date: 20140416
  Receipt Date: 20140416
  Transmission Date: 20141212
  Serious: Yes (Hospitalization)
  Sender: FDA-Public Use
  Company Number: DE-BRISTOL-MYERS SQUIBB COMPANY-20622049

PATIENT
  Sex: Female

DRUGS (1)
  1. YERVOY [Suspect]

REACTIONS (6)
  - Listless [Unknown]
  - Depression [Unknown]
  - Hypophysitis [Unknown]
  - Metastases to central nervous system [Unknown]
  - Blood thyroid stimulating hormone decreased [Unknown]
  - Hyponatraemia [Unknown]
